FAERS Safety Report 9750912 (Version 1)
Quarter: 2013Q4

REPORT INFORMATION
  Report Type: Spontaneous
  Country: US (occurrence: US)
  Receive Date: 20131212
  Receipt Date: 20131212
  Transmission Date: 20140711
  Serious: No
  Sender: FDA-Public Use
  Company Number: US-PFIZER INC-2013355112

PATIENT
  Age: 60 Year
  Sex: Male
  Weight: 114 kg

DRUGS (1)
  1. EFFEXOR XR [Suspect]
     Indication: MENTAL DISORDER
     Dosage: 75 MG, 1X/DAY

REACTIONS (4)
  - Diarrhoea [Unknown]
  - Pruritus [Unknown]
  - Dizziness [Unknown]
  - Off label use [Not Recovered/Not Resolved]
